FAERS Safety Report 5556586-7 (Version None)
Quarter: 2007Q4

REPORT INFORMATION
  Report Type: 
  Country: None (occurrence: None)
  Receive Date: 20071213
  Receipt Date: 20070924
  Transmission Date: 20080405
  Serious: No
  Sender: FDA-Public Use
  Company Number: US-AMGEN-KDL242637

PATIENT
  Sex: Female
  Weight: 73.5 kg

DRUGS (7)
  1. ENBREL [Suspect]
     Indication: RHEUMATOID ARTHRITIS
     Route: 058
     Dates: start: 20070730
  2. METHOTREXATE [Concomitant]
     Route: 048
     Dates: start: 20060101
  3. AZULFIDINE EN-TABS [Concomitant]
     Dates: start: 20060101
  4. FOLIC ACID [Concomitant]
     Dates: start: 20060101
  5. CLARITIN [Concomitant]
  6. FLEXERIL [Concomitant]
     Dates: start: 20060101
  7. HYDROXYZINE [Concomitant]

REACTIONS (6)
  - FATIGUE [None]
  - GAIT DISTURBANCE [None]
  - INJECTION SITE BRUISING [None]
  - INJECTION SITE PAIN [None]
  - NODULE [None]
  - SOMNOLENCE [None]
